FAERS Safety Report 21725637 (Version 1)
Quarter: 2022Q4

REPORT INFORMATION
  Report Type: Other
  Country: IN (occurrence: None)
  Receive Date: 20221214
  Receipt Date: 20221214
  Transmission Date: 20230113
  Serious: Yes (Other)
  Sender: FDA-Public Use
  Company Number: IN-ROCHE-3233835

PATIENT
  Age: 31 Year
  Sex: Male

DRUGS (6)
  1. TOCILIZUMAB [Suspect]
     Active Substance: TOCILIZUMAB
     Indication: COVID-19 pneumonia
     Dosage: (5.3 MG/KG)
     Route: 042
  2. REMDESIVIR [Concomitant]
     Active Substance: REMDESIVIR
  3. REMDESIVIR [Concomitant]
     Active Substance: REMDESIVIR
  4. AMPHOTERICIN B [Concomitant]
     Active Substance: AMPHOTERICIN B
  5. POSACONAZOLE [Concomitant]
     Active Substance: POSACONAZOLE
  6. DEXAMETHASONE [Concomitant]
     Active Substance: DEXAMETHASONE
     Dosage: FOR 10 DAYS

REACTIONS (2)
  - Off label use [Unknown]
  - Mucormycosis [Unknown]
